FAERS Safety Report 8421010-3 (Version None)
Quarter: 2012Q2

REPORT INFORMATION
  Report Type: 
  Country: None (occurrence: None)
  Receive Date: 20120608
  Receipt Date: 20120604
  Transmission Date: 20120825
  Serious: No
  Sender: FDA-Public Use
  Company Number: US-PFIZER INC-2012054401

PATIENT
  Sex: Male

DRUGS (6)
  1. LIPITOR [Concomitant]
     Indication: BLOOD CHOLESTEROL INCREASED
     Dosage: 10 MG, DAILY
     Route: 048
  2. TIKOSYN [Suspect]
     Indication: ATRIAL FIBRILLATION
     Dosage: 250 UG, 2X/DAY
     Route: 048
     Dates: start: 20120427
  3. CREON [Concomitant]
     Indication: PANCREATITIS
     Dosage: 12 MG, 3X/DAY
     Route: 048
  4. TOPROL-XL [Concomitant]
     Dosage: 2.5 MG, UNK
  5. PLAVIX [Concomitant]
     Indication: ANTICOAGULANT THERAPY
     Dosage: 75 MG, DAILY
     Route: 048
  6. TOPROL-XL [Concomitant]
     Indication: HYPERTENSION
     Dosage: UNK, 2X/DAY
     Route: 048

REACTIONS (1)
  - ABDOMINAL PAIN UPPER [None]
